FAERS Safety Report 11039155 (Version 2)
Quarter: 2015Q2

REPORT INFORMATION
  Report Type: Spontaneous
  Country: US (occurrence: US)
  Receive Date: 20150416
  Receipt Date: 20150525
  Transmission Date: 20150821
  Serious: Yes (Other)
  Sender: FDA-Public Use
  Company Number: US-JNJFOC-20130805538

PATIENT
  Age: 73 Year
  Sex: Female
  Weight: 75.3 kg

DRUGS (8)
  1. XARELTO [Suspect]
     Active Substance: RIVAROXABAN
     Indication: ATRIAL FIBRILLATION
     Route: 048
     Dates: start: 201210, end: 20130627
  2. XANTHINE [Concomitant]
     Indication: EYE DISORDER
     Route: 065
  3. LUTEIN/ZEAXANTHIN [Concomitant]
     Route: 065
  4. XARELTO [Suspect]
     Active Substance: RIVAROXABAN
     Indication: CEREBROVASCULAR ACCIDENT PROPHYLAXIS
     Route: 048
     Dates: start: 201210, end: 20130627
  5. BETAXOLOL [Concomitant]
     Active Substance: BETAXOLOL
     Indication: HYPERTENSION
     Route: 048
     Dates: start: 2013
  6. LORAZEPAM. [Concomitant]
     Active Substance: LORAZEPAM
     Indication: NEUROPATHY PERIPHERAL
     Route: 048
     Dates: start: 2013
  7. CENTRUM SILVER [Concomitant]
     Active Substance: VITAMINS
     Route: 065
  8. LUTEIN [Concomitant]
     Active Substance: LUTEIN
     Indication: EYE DISORDER
     Route: 065

REACTIONS (5)
  - Gastric ulcer haemorrhage [Unknown]
  - Contusion [Recovering/Resolving]
  - Gastric haemorrhage [Unknown]
  - Faeces discoloured [Recovered/Resolved]
  - Limb injury [Unknown]

NARRATIVE: CASE EVENT DATE: 201211
